FAERS Safety Report 8710815 (Version 2)
Quarter: 2012Q4

REPORT INFORMATION
  Report Type: 
  Country: CN (occurrence: CN)
  Receive Date: 20120807
  Receipt Date: 20121112
  Transmission Date: 20130627
  Serious: Yes (Hospitalization)
  Sender: FDA-Public Use
  Company Number: PHHY2012CN066922

PATIENT
  Age: 75 Year
  Sex: Male

DRUGS (5)
  1. GLIVEC [Suspect]
     Indication: GASTROINTESTINAL STROMAL TUMOUR
     Dosage: 400 mg, daily
     Route: 048
  2. GLIVEC [Suspect]
     Dosage: 400 mg  for 4 days
  3. GLIVEC [Suspect]
     Dosage: 400 mg, QD
  4. COAPROVEL [Concomitant]
     Dosage: UNK UKN, UNK
  5. INSULIN [Concomitant]
     Route: 058

REACTIONS (15)
  - Pleural fibrosis [Unknown]
  - Hydrothorax [Unknown]
  - Lung infection [Unknown]
  - Interstitial lung disease [Unknown]
  - Pleural effusion [Unknown]
  - PO2 decreased [Unknown]
  - Oxygen saturation decreased [Unknown]
  - Increased upper airway secretion [Unknown]
  - Rales [Unknown]
  - Cough [Recovered/Resolved]
  - Dyspnoea [Recovered/Resolved]
  - Chest pain [Unknown]
  - Oedema [Unknown]
  - Oedema peripheral [Unknown]
  - Exfoliative rash [Unknown]
